FAERS Safety Report 5591440-6 (Version None)
Quarter: 2008Q1

REPORT INFORMATION
  Report Type: 
  Country: None (occurrence: None)
  Receive Date: 20080115
  Receipt Date: 20080104
  Transmission Date: 20080703
  Serious: Yes (Other)
  Sender: FDA-Public Use
  Company Number: US-JNJFOC-20080101097

PATIENT
  Age: 61 Year
  Sex: Male
  Weight: 82.56 kg

DRUGS (3)
  1. EXTRA STRENGTH TYLENOL [Suspect]
     Indication: INSOMNIA
  2. METOPROLOL [Concomitant]
     Indication: HYPERTENSION
  3. ANTIFUNGAL [Concomitant]
     Route: 061

REACTIONS (4)
  - ABNORMAL BEHAVIOUR [None]
  - ALCOHOL USE [None]
  - DEPENDENCE [None]
  - DRUG INEFFECTIVE [None]
